FAERS Safety Report 7681045-5 (Version None)
Quarter: 2011Q3

REPORT INFORMATION
  Report Type: 
  Country: None (occurrence: None)
  Receive Date: 20110812
  Receipt Date: 20110801
  Transmission Date: 20111222
  Serious: Yes (Hospitalization)
  Sender: FDA-Public Use
  Company Number: US-SANOFI-AVENTIS-2011SA044491

PATIENT
  Age: 78 Year
  Sex: Male
  Weight: 131 kg

DRUGS (14)
  1. ASPIRIN [Concomitant]
     Route: 065
  2. COLACE [Concomitant]
  3. AMLODIPINE BESYLATE [Concomitant]
  4. LABETALOL HCL [Concomitant]
     Route: 065
  5. HYDRALAZINE HCL [Concomitant]
  6. IMDUR [Concomitant]
  7. FUROSEMIDE [Concomitant]
  8. ADVAIR DISKUS 100/50 [Concomitant]
     Dosage: DOSE:2 PUFF(S)
  9. SIMVASTATIN [Concomitant]
     Route: 065
  10. LABETALOL HCL [Concomitant]
  11. DRONEDARONE HCL [Suspect]
     Indication: ATRIAL FIBRILLATION
     Route: 048
     Dates: start: 20110126, end: 20110304
  12. ZOCOR [Concomitant]
  13. ALBUTEROL SULFATE AUTOHALER [Concomitant]
  14. WARFARIN SODIUM [Concomitant]
     Route: 065

REACTIONS (1)
  - CARDIAC FAILURE [None]
